FAERS Safety Report 22250059 (Version 1)
Quarter: 2023Q2

REPORT INFORMATION
  Report Type: Spontaneous
  Country: US (occurrence: None)
  Receive Date: 20230424
  Receipt Date: 20230424
  Transmission Date: 20230721
  Serious: No
  Sender: FDA-Public Use
  Company Number: None

PATIENT
  Age: 63 Year
  Sex: Male
  Weight: 63.2 kg

DRUGS (4)
  1. IMBRUVICA [Suspect]
     Active Substance: IBRUTINIB
     Indication: Marginal zone lymphoma
     Dosage: FREQUENCY : DAILY;?
     Route: 048
     Dates: start: 20221201, end: 20230329
  2. Metformin 500mg twice daily [Concomitant]
  3. Pantoprazole 40mg daily [Concomitant]
  4. Folic acid 1mg daily [Concomitant]

REACTIONS (2)
  - Abnormal dreams [None]
  - Insomnia [None]
